FAERS Safety Report 9245127 (Version 1)
Quarter: 2013Q2

REPORT INFORMATION
  Report Type: Spontaneous
  Country: AU (occurrence: AU)
  Receive Date: 20130422
  Receipt Date: 20130422
  Transmission Date: 20140414
  Serious: Yes (Other)
  Sender: FDA-Public Use
  Company Number: AU-JNJFOC-20130405509

PATIENT
  Sex: 0

DRUGS (9)
  1. FENTANYL CITRATE [Suspect]
     Indication: ANALGESIC THERAPY
     Dosage: 20 UG WITH 5MIN LOCKOUT??MAXIMUM DOSE 240 UG/HR
     Route: 042
  2. MORPHINE [Suspect]
     Indication: ANALGESIC THERAPY
     Dosage: 1MG WITH 5MIN LOCKOUT (MAXIMUM 10MG/H)
     Route: 042
  3. BUPIVACAINE [Suspect]
     Indication: SPINAL ANAESTHESIA
     Dosage: 2.5 TO 3 ML
     Route: 065
  4. PROPOFOL [Suspect]
     Indication: GENERAL ANAESTHESIA
     Route: 065
  5. SEVOFLURANE [Suspect]
     Indication: GENERAL ANAESTHESIA
     Dosage: AT A MINIMUM??ALVEOLAR CONCENTRATION OF 1
     Route: 065
  6. IBUPROFEN [Suspect]
     Indication: ANALGESIC THERAPY
     Route: 065
  7. OXYCODONE [Suspect]
     Indication: ANALGESIC THERAPY
     Route: 065
  8. PARACETAMOL [Suspect]
     Indication: ANALGESIC THERAPY
     Route: 048
  9. PARACETAMOL [Suspect]
     Indication: ANALGESIC THERAPY
     Route: 048

REACTIONS (1)
  - Urinary retention [Unknown]
